FAERS Safety Report 12195535 (Version 2)
Quarter: 2016Q2

REPORT INFORMATION
  Report Type: Spontaneous
  Country: US (occurrence: US)
  Receive Date: 20160321
  Receipt Date: 20160404
  Transmission Date: 20160815
  Serious: Yes (Other)
  Sender: FDA-Public Use
  Company Number: US-MDT-ADR-2016-00536

PATIENT
  Age: 12 Year
  Sex: Male

DRUGS (1)
  1. LIORESAL [Suspect]
     Active Substance: BACLOFEN
     Indication: MUSCLE SPASTICITY
     Dosage: 330 MCG/DAY
     Route: 037

REACTIONS (8)
  - Fall [Unknown]
  - Implant site infection [Unknown]
  - Implant site extravasation [Unknown]
  - Muscle spasticity [Unknown]
  - Gait disturbance [Unknown]
  - Medical device site haematoma [Unknown]
  - Medical device site erythema [Unknown]
  - White blood cell count increased [Unknown]
